FAERS Safety Report 7610636-2 (Version None)
Quarter: 2011Q3

REPORT INFORMATION
  Report Type: 
  Country: None (occurrence: None)
  Receive Date: 20110715
  Receipt Date: 20110705
  Transmission Date: 20111222
  Serious: Yes (Other)
  Sender: FDA-Public Use
  Company Number: US-SANOFI-AVENTIS-2011SA044273

PATIENT
  Sex: Male

DRUGS (1)
  1. LOVENOX [Suspect]
     Route: 065

REACTIONS (2)
  - DRUG DOSE OMISSION [None]
  - SQUAMOUS CELL CARCINOMA [None]
